FAERS Safety Report 15212117 (Version 1)
Quarter: 2018Q3

REPORT INFORMATION
  Report Type: Spontaneous
  Country: US (occurrence: US)
  Receive Date: 20180730
  Receipt Date: 20180730
  Transmission Date: 20181010
  Serious: No
  Sender: FDA-Public Use
  Company Number: US-JNJFOC-20180715062

PATIENT
  Age: 21 Year
  Sex: Female
  Weight: 53.07 kg

DRUGS (2)
  1. TRINESSA [Suspect]
     Active Substance: ETHINYL ESTRADIOL\NORGESTIMATE
     Indication: CONTRACEPTION
     Dosage: EITHER MAR OR APR?2018
     Route: 048
     Dates: start: 2018, end: 2018
  2. ORTHO TRI CYCLEN LO [Suspect]
     Active Substance: ETHINYL ESTRADIOL\NORGESTIMATE
     Indication: PRODUCT USED FOR UNKNOWN INDICATION
     Route: 065
     Dates: start: 20180627

REACTIONS (5)
  - Nonspecific reaction [Recovering/Resolving]
  - Malaise [Recovered/Resolved]
  - Vomiting [Recovered/Resolved]
  - Rash [Recovering/Resolving]
  - Emotional disorder [Recovering/Resolving]

NARRATIVE: CASE EVENT DATE: 20180710
